FAERS Safety Report 7910529-7 (Version None)
Quarter: 2011Q4

REPORT INFORMATION
  Report Type: 
  Country: None (occurrence: None)
  Receive Date: 20111111
  Receipt Date: 20111101
  Transmission Date: 20120403
  Serious: Yes (Death, Hospitalization)
  Sender: FDA-Public Use
  Company Number: PHHO2009GB02436

PATIENT
  Sex: Female
  Weight: 44.8 kg

DRUGS (4)
  1. TIOTROPIUM [Concomitant]
     Dosage: UNK
     Dates: start: 20020101
  2. SYMBICORT [Concomitant]
     Dosage: UNK
     Dates: start: 19990101
  3. BRICANYL [Concomitant]
     Dosage: UNK
     Dates: start: 19990101
  4. LETROZOLE [Suspect]
     Indication: BREAST CANCER
     Dosage: 2.5 MG, QD
     Route: 048
     Dates: start: 20070608, end: 20110104

REACTIONS (2)
  - ATRIAL FIBRILLATION [None]
  - DEATH [None]
